FAERS Safety Report 8552004 (Version 2)
Quarter: 2013Q1

REPORT INFORMATION
  Report Type: Spontaneous
  Country: GR (occurrence: GR)
  Receive Date: 20120508
  Receipt Date: 20130220
  Transmission Date: 20140127
  Serious: Yes (Other)
  Sender: FDA-Public Use
  Company Number: GR-ROCHE-1062392

PATIENT
  Age: 65 Year
  Sex: Male

DRUGS (2)
  1. AVASTIN [Suspect]
     Indication: EYE OEDEMA
     Route: 031
     Dates: start: 200605
  2. DEPO-MEDROL [Suspect]
     Indication: EYE OEDEMA
     Route: 031

REACTIONS (4)
  - Corneal disorder [Unknown]
  - Retinal tear [Recovered/Resolved]
  - Vision blurred [Unknown]
  - Visual impairment [Unknown]
